FAERS Safety Report 13724660 (Version 1)
Quarter: 2017Q3

REPORT INFORMATION
  Report Type: Spontaneous
  Country: FR (occurrence: FR)
  Receive Date: 20170706
  Receipt Date: 20170706
  Transmission Date: 20171127
  Serious: Yes (Disabling)
  Sender: FDA-Public Use
  Company Number: FR-ASTRAZENECA-2017SE69068

PATIENT
  Age: 738 Month
  Sex: Female

DRUGS (12)
  1. MOPRAL [Suspect]
     Active Substance: OMEPRAZOLE SODIUM
     Indication: OESOPHAGITIS ULCERATIVE
     Route: 048
     Dates: start: 201706, end: 201706
  2. MOPRAL [Suspect]
     Active Substance: OMEPRAZOLE SODIUM
     Indication: HIATUS HERNIA
     Route: 048
  3. MOPRAL [Suspect]
     Active Substance: OMEPRAZOLE SODIUM
     Indication: OESOPHAGITIS ULCERATIVE
     Route: 048
  4. MOPRAL [Suspect]
     Active Substance: OMEPRAZOLE SODIUM
     Indication: HIATUS HERNIA
     Route: 048
     Dates: start: 201601, end: 201706
  5. MOPRAL [Suspect]
     Active Substance: OMEPRAZOLE SODIUM
     Indication: GASTROOESOPHAGEAL REFLUX DISEASE
     Route: 048
     Dates: start: 201706, end: 201706
  6. MOPRAL [Suspect]
     Active Substance: OMEPRAZOLE SODIUM
     Indication: GASTROOESOPHAGEAL REFLUX DISEASE
     Route: 048
     Dates: start: 201706, end: 201706
  7. MOPRAL [Suspect]
     Active Substance: OMEPRAZOLE SODIUM
     Indication: OESOPHAGITIS ULCERATIVE
     Route: 048
     Dates: start: 201706, end: 201706
  8. MOPRAL [Suspect]
     Active Substance: OMEPRAZOLE SODIUM
     Indication: OESOPHAGITIS ULCERATIVE
     Route: 048
     Dates: start: 201601, end: 201706
  9. MOPRAL [Suspect]
     Active Substance: OMEPRAZOLE SODIUM
     Indication: GASTROOESOPHAGEAL REFLUX DISEASE
     Route: 048
  10. MOPRAL [Suspect]
     Active Substance: OMEPRAZOLE SODIUM
     Indication: GASTROOESOPHAGEAL REFLUX DISEASE
     Route: 048
     Dates: start: 201601, end: 201706
  11. MOPRAL [Suspect]
     Active Substance: OMEPRAZOLE SODIUM
     Indication: HIATUS HERNIA
     Route: 048
     Dates: start: 201706, end: 201706
  12. MOPRAL [Suspect]
     Active Substance: OMEPRAZOLE SODIUM
     Indication: HIATUS HERNIA
     Route: 048
     Dates: start: 201706, end: 201706

REACTIONS (6)
  - Hypotension [Not Recovered/Not Resolved]
  - Fatigue [Not Recovered/Not Resolved]
  - Asthenia [Not Recovered/Not Resolved]
  - Migraine [Not Recovered/Not Resolved]
  - Nausea [Not Recovered/Not Resolved]
  - Off label use [Not Recovered/Not Resolved]

NARRATIVE: CASE EVENT DATE: 201601
